FAERS Safety Report 11048194 (Version 1)
Quarter: 2015Q2

REPORT INFORMATION
  Report Type: Spontaneous
  Country: US (occurrence: US)
  Receive Date: 20150420
  Receipt Date: 20150420
  Transmission Date: 20150821
  Serious: No
  Sender: FDA-Public Use
  Company Number: US-ABBVIE-14P-163-1260678-00

PATIENT
  Age: 9 Year
  Sex: Female

DRUGS (1)
  1. LUPRON DEPOT-PED [Suspect]
     Active Substance: LEUPROLIDE ACETATE
     Indication: PRECOCIOUS PUBERTY
     Dates: start: 2012

REACTIONS (4)
  - Blood follicle stimulating hormone abnormal [Not Recovered/Not Resolved]
  - Menstrual disorder [Not Recovered/Not Resolved]
  - Drug dose omission [Not Recovered/Not Resolved]
  - Blood luteinising hormone abnormal [Not Recovered/Not Resolved]

NARRATIVE: CASE EVENT DATE: 20140627
